FAERS Safety Report 6983061-5 (Version None)
Quarter: 2010Q3

REPORT INFORMATION
  Report Type: 
  Country: None (occurrence: None)
  Receive Date: 20100914
  Receipt Date: 20100608
  Transmission Date: 20110219
  Serious: No
  Sender: FDA-Public Use
  Company Number: US-PFIZER INC-2010072421

PATIENT
  Sex: Male
  Weight: 104.31 kg

DRUGS (4)
  1. LYRICA [Suspect]
     Indication: BACK PAIN
     Dosage: 50 MG, DAILY
     Route: 048
     Dates: start: 20100602
  2. METOPROLOL [Concomitant]
     Dosage: UNK
  3. PREVACID [Concomitant]
     Dosage: UNK
  4. ADVAIR DISKUS 100/50 [Concomitant]
     Dosage: UNK

REACTIONS (2)
  - HYPOAESTHESIA [None]
  - PARAESTHESIA [None]
